FAERS Safety Report 12798319 (Version 1)
Quarter: 2016Q3

REPORT INFORMATION
  Report Type: Report from Study
  Country: FR (occurrence: FR)
  Receive Date: 20160930
  Receipt Date: 20160930
  Transmission Date: 20161109
  Serious: Yes (Other)
  Sender: FDA-Public Use
  Company Number: FR-ACCORD-044398

PATIENT
  Age: 47 Year
  Sex: Male

DRUGS (3)
  1. ALIMEMAZINE/ALIMEMAZINE TARTRATE [Concomitant]
  2. AMITRIPTYLINE [Suspect]
     Active Substance: AMITRIPTYLINE
     Indication: MAJOR DEPRESSION
  3. CYAMEMAZINE/CYAMEMAZINE TARTRATE [Concomitant]

REACTIONS (1)
  - Mixed liver injury [Recovered/Resolved]
